FAERS Safety Report 22585884 (Version 1)
Quarter: 2023Q2

REPORT INFORMATION
  Report Type: Spontaneous
  Country: IT (occurrence: IT)
  Receive Date: 20230610
  Receipt Date: 20230610
  Transmission Date: 20230721
  Serious: Yes (Other)
  Sender: FDA-Public Use
  Company Number: None

PATIENT
  Age: 76 Year
  Sex: Male

DRUGS (4)
  1. OXALIPLATIN [Suspect]
     Active Substance: OXALIPLATIN
     Indication: Pancreatic carcinoma metastatic
     Dosage: 85 MG/M2, Q2W (85 MG/MQ OGNI DUE SETTIMANE)
     Route: 042
     Dates: start: 20230214, end: 20230412
  2. LEVOLEUCOVORIN CALCIUM [Concomitant]
     Active Substance: LEVOLEUCOVORIN CALCIUM
     Indication: Pancreatic carcinoma metastatic
     Dosage: 200 MG/M2, Q2W (200 MG/MQ OGNI DUE SETTIMANE)
     Route: 042
     Dates: start: 20230214
  3. FLUOROURACIL [Concomitant]
     Active Substance: FLUOROURACIL
     Indication: Pancreatic carcinoma metastatic
     Dosage: 2400 MG/M2 IN INFUSIONE CONTINUA PER 48 ORE OGNI DUE SETTIMANE
     Route: 042
     Dates: start: 20230214
  4. FLUOROURACIL [Concomitant]
     Active Substance: FLUOROURACIL
     Dosage: 400 MG/M2, Q2W (400 MG/MQ OGNI DUE SETTIMANE)
     Route: 042
     Dates: start: 20230214

REACTIONS (1)
  - Thrombocytopenia [Not Recovered/Not Resolved]

NARRATIVE: CASE EVENT DATE: 20230502
